FAERS Safety Report 15037190 (Version 1)
Quarter: 2018Q2

REPORT INFORMATION
  Report Type: Spontaneous
  Country: GB (occurrence: GB)
  Receive Date: 20180620
  Receipt Date: 20180620
  Transmission Date: 20180711
  Serious: Yes (Life-Threatening, Hospitalization)
  Sender: FDA-Public Use
  Company Number: GB-TEVA-2018-GB-911503

PATIENT
  Age: 75 Year
  Sex: Female
  Weight: 48 kg

DRUGS (4)
  1. NITROFURANTOIN. [Concomitant]
     Active Substance: NITROFURANTOIN
  2. OMEPRAZOLE. [Concomitant]
     Active Substance: OMEPRAZOLE
  3. PARACETAMOL [Concomitant]
     Active Substance: ACETAMINOPHEN
  4. CAPECITABINE. [Suspect]
     Active Substance: CAPECITABINE
     Indication: OESOPHAGEAL CARCINOMA
     Dosage: 2000 MILLIGRAM DAILY;
     Route: 048
     Dates: start: 20180505, end: 20180514

REACTIONS (1)
  - Acute myocardial infarction [Not Recovered/Not Resolved]

NARRATIVE: CASE EVENT DATE: 20180513
